FAERS Safety Report 9001230 (Version 1)
Quarter: 2013Q1

REPORT INFORMATION
  Report Type: Spontaneous
  Country: US (occurrence: None)
  Receive Date: 20130102
  Receipt Date: 20130102
  Transmission Date: 20140127
  Serious: Yes (Hospitalization)
  Sender: FDA-Public Use
  Company Number: None

PATIENT
  Age: 71 Year
  Sex: Male
  Weight: 64.4 kg

DRUGS (2)
  1. LITHIUM [Suspect]
     Indication: BIPOLAR DISORDER
     Dosage: MG OTHER PO
     Route: 048
     Dates: start: 20080304
  2. LITHIUM [Suspect]
     Indication: MANIA
     Dosage: MG OTHER PO
     Route: 048
     Dates: start: 20080304

REACTIONS (3)
  - Mania [None]
  - Drug dose omission [None]
  - Antipsychotic drug level decreased [None]
